FAERS Safety Report 6732040-1 (Version None)
Quarter: 2010Q2

REPORT INFORMATION
  Report Type: 
  Country: None (occurrence: None)
  Receive Date: 20100519
  Receipt Date: 20100513
  Transmission Date: 20101027
  Serious: Yes (Death, Other)
  Sender: FDA-Public Use
  Company Number: PHHY2010US14293

PATIENT
  Sex: Female
  Weight: 51 kg

DRUGS (1)
  1. EXJADE [Suspect]
     Indication: HAEMOLYTIC ANAEMIA
     Dosage: 1250 MG, QD
     Route: 048
     Dates: start: 20080408, end: 20100120

REACTIONS (6)
  - BLOOD PRODUCT TRANSFUSION DEPENDENT [None]
  - FLUID OVERLOAD [None]
  - MALAISE [None]
  - MYELODYSPLASTIC SYNDROME [None]
  - PULMONARY OEDEMA [None]
  - SERUM FERRITIN INCREASED [None]
